FAERS Safety Report 5897266-8 (Version None)
Quarter: 2008Q3

REPORT INFORMATION
  Report Type: 
  Country: None (occurrence: None)
  Receive Date: 20080923
  Receipt Date: 20080908
  Transmission Date: 20090109
  Serious: Yes (Hospitalization)
  Sender: FDA-Public Use
  Company Number: 2008S1016492

PATIENT
  Age: 80 Year
  Sex: Female

DRUGS (5)
  1. CITALOPRAM HYDROBROMIDE [Suspect]
     Indication: DEPRESSION
     Dosage: 20 MG;DAILY;ORAL
     Route: 048
     Dates: start: 20080311, end: 20080507
  2. SEROQUEL [Suspect]
     Indication: PSYCHOTIC DISORDER
     Dosage: 1 DF; TWICE A DAY; ORAL
     Route: 048
     Dates: start: 20080314
  3. DIOVAN COMP [Concomitant]
  4. SIMVASTATIN [Concomitant]
  5. ACETAMINOPHEN [Concomitant]

REACTIONS (4)
  - DIET REFUSAL [None]
  - NAUSEA [None]
  - URINARY RETENTION [None]
  - VOMITING [None]
